FAERS Safety Report 9375993 (Version 1)
Quarter: 2013Q2

REPORT INFORMATION
  Report Type: Spontaneous
  Country: US (occurrence: None)
  Receive Date: 20130628
  Receipt Date: 20130628
  Transmission Date: 20140414
  Serious: Yes (Death)
  Sender: FDA-Public Use
  Company Number: None

PATIENT
  Age: 60 Year
  Sex: Male
  Weight: 91.5 kg

DRUGS (15)
  1. MULTIHANCE [Suspect]
     Indication: PYREXIA
     Dosage: 18 ML ONCE IV
     Route: 042
     Dates: start: 20130622, end: 20130622
  2. MULTIHANCE [Suspect]
     Indication: BACK PAIN
     Dosage: 18 ML ONCE IV
     Route: 042
     Dates: start: 20130622, end: 20130622
  3. MULTIHANCE [Suspect]
     Indication: NUCLEAR MAGNETIC RESONANCE IMAGING SPINAL
     Dosage: 18 ML ONCE IV
     Route: 042
     Dates: start: 20130622, end: 20130622
  4. IOHEXOL [Concomitant]
  5. ACETAMINOPHEN [Concomitant]
  6. ASPIRIN [Concomitant]
  7. CARBAMAZEPINE [Concomitant]
  8. FENOFIBRATE [Concomitant]
  9. TRICOR -FENOFIBRATE- [Concomitant]
  10. HEPARIN [Concomitant]
  11. MORPHINE [Concomitant]
  12. ONDANSETRON [Concomitant]
  13. OXYCODONE/APAP [Concomitant]
  14. PHENOBARBITAL [Concomitant]
  15. TIZANIDINE [Concomitant]

REACTIONS (5)
  - Vomiting [None]
  - Hypoxia [None]
  - Unresponsive to stimuli [None]
  - Resuscitation [None]
  - Circulatory collapse [None]
